FAERS Safety Report 6877082-0 (Version None)
Quarter: 2010Q3

REPORT INFORMATION
  Report Type: 
  Country: None (occurrence: None)
  Receive Date: 20100727
  Receipt Date: 20100727
  Transmission Date: 20110219
  Serious: Yes (Other)
  Sender: FDA-Public Use
  Company Number: None

PATIENT
  Age: 59 Year
  Sex: Female
  Weight: 43.0917 kg

DRUGS (1)
  1. PREVAGEMD 1% IDEBENONE ALLEGAN [Suspect]
     Dosage: TOPICAL CREAM ONCE
     Dates: start: 20100721, end: 20100721

REACTIONS (6)
  - DISCOMFORT [None]
  - ERYTHEMA [None]
  - INFLAMMATION [None]
  - PRURITUS [None]
  - SKIN WARM [None]
  - SWELLING [None]
